FAERS Safety Report 8080333-0 (Version None)
Quarter: 2012Q1

REPORT INFORMATION
  Report Type: 
  Country: None (occurrence: None)
  Receive Date: 20120130
  Receipt Date: 20120118
  Transmission Date: 20120608
  Serious: Yes (Other)
  Sender: FDA-Public Use
  Company Number: JP-AMGEN-JPNCT2012005497

PATIENT
  Age: 64 Year
  Sex: Female
  Weight: 48 kg

DRUGS (3)
  1. FERRUM [Concomitant]
     Indication: ANAEMIA
     Dosage: 100 MG, QD
     Route: 048
     Dates: start: 20111202
  2. DENOSUMAB [Suspect]
     Indication: OSTEOPOROSIS
     Dosage: 60 MG, Q6MO
     Route: 058
     Dates: start: 20081028, end: 20110419
  3. PROMACTA [Concomitant]
     Indication: GASTRITIS PROPHYLAXIS
     Dosage: 0.5 G, QD
     Route: 048
     Dates: start: 20111202

REACTIONS (7)
  - VOMITING [None]
  - CONSTIPATION [None]
  - GASTRIC POLYPS [None]
  - GASTRITIS EROSIVE [None]
  - ANAEMIA [None]
  - LARGE INTESTINE CARCINOMA [None]
  - LARGE INTESTINAL OBSTRUCTION [None]
